FAERS Safety Report 9961306 (Version 2)
Quarter: 2014Q1

REPORT INFORMATION
  Report Type: Spontaneous
  Country: US (occurrence: US)
  Receive Date: 20140305
  Receipt Date: 20140318
  Transmission Date: 20141002
  Serious: Yes (Hospitalization)
  Sender: FDA-Public Use
  Company Number: 2014SP000590

PATIENT
  Age: 57 Year
  Sex: Female

DRUGS (5)
  1. LATUDA [Suspect]
     Route: 048
     Dates: start: 2014, end: 201402
  2. LATUDA [Suspect]
     Route: 048
     Dates: start: 2014, end: 2014
  3. METFORMIN [Concomitant]
     Dates: end: 201402
  4. SEROQUEL [Concomitant]
  5. CYMBALTA [Concomitant]

REACTIONS (3)
  - Colitis [Unknown]
  - Abdominal abscess [Unknown]
  - Renal failure [Unknown]
